FAERS Safety Report 9663792 (Version 1)
Quarter: 2013Q4

REPORT INFORMATION
  Report Type: Spontaneous
  Country: US (occurrence: US)
  Receive Date: 20131101
  Receipt Date: 20131101
  Transmission Date: 20140711
  Serious: Yes (Death, Hospitalization)
  Sender: FDA-Public Use
  Company Number: US-NOVOPROD-390997

PATIENT
  Age: 62 Year
  Sex: Female

DRUGS (1)
  1. VICTOZA [Suspect]
     Indication: TYPE 2 DIABETES MELLITUS
     Dosage: 1.2 MG, QD
     Route: 058
     Dates: start: 20130828, end: 20130912

REACTIONS (5)
  - Death [Fatal]
  - Dehydration [Unknown]
  - Renal failure [Unknown]
  - Pancreatitis [Unknown]
  - Blood glucose increased [Unknown]
